FAERS Safety Report 8835802 (Version 1)
Quarter: 2012Q4

REPORT INFORMATION
  Report Type: 
  Country: US (occurrence: US)
  Receive Date: 20121011
  Receipt Date: 20121011
  Transmission Date: 20130627
  Serious: Yes (Other)
  Sender: FDA-Public Use
  Company Number: US-GLAXOSMITHKLINE-A0997038A

PATIENT
  Sex: Female

DRUGS (3)
  1. ADVAIR [Suspect]
     Indication: EMPHYSEMA
     Route: 055
  2. ALBUTEROL [Suspect]
     Indication: EMPHYSEMA
     Route: 055
  3. VENTOLIN HFA [Suspect]
     Indication: EMPHYSEMA
     Route: 055

REACTIONS (1)
  - Sjogren^s syndrome [Unknown]
